FAERS Safety Report 5872014-6 (Version None)
Quarter: 2008Q3

REPORT INFORMATION
  Report Type: 
  Country: None (occurrence: None)
  Receive Date: 20080904
  Receipt Date: 20080904
  Transmission Date: 20090109
  Serious: Yes (Hospitalization)
  Sender: FDA-Public Use
  Company Number: None

PATIENT
  Age: 74 Year

DRUGS (2)
  1. ACYCLOVIR [Suspect]
     Indication: HERPES ZOSTER
     Dosage: 400 MG QID PO
     Route: 048
     Dates: start: 20080719, end: 20080721
  2. ACYCLOVIR [Suspect]
     Dosage: 800 + 700 MG TID IV
     Route: 042
     Dates: start: 20080721, end: 20080731

REACTIONS (5)
  - ANOREXIA [None]
  - RASH [None]
  - RASH PRURITIC [None]
  - RENAL FAILURE ACUTE [None]
  - VOMITING [None]
